FAERS Safety Report 24390065 (Version 2)
Quarter: 2024Q4

REPORT INFORMATION
  Report Type: Spontaneous
  Country: US (occurrence: US)
  Receive Date: 20241003
  Receipt Date: 20241008
  Transmission Date: 20250115
  Serious: No
  Sender: GILEAD
  Company Number: US-GILEAD-2024-0689441

PATIENT
  Age: 82 Year
  Sex: Male

DRUGS (2)
  1. VEKLURY [Suspect]
     Active Substance: REMDESIVIR
     Indication: COVID-19
     Dosage: 100MG, INTRAVENOUS INFUSION, ONCE DAILY
     Route: 042
     Dates: start: 202309
  2. PLAVIX [Concomitant]
     Active Substance: CLOPIDOGREL BISULFATE

REACTIONS (2)
  - Pruritus [Not Recovered/Not Resolved]
  - Rash pruritic [Not Recovered/Not Resolved]

NARRATIVE: CASE EVENT DATE: 20230901
